FAERS Safety Report 8760094 (Version 1)
Quarter: 2012Q4

REPORT INFORMATION
  Report Type: Spontaneous
  Country: US (occurrence: None)
  Receive Date: 20120829
  Receipt Date: 20120829
  Transmission Date: 20130627
  Serious: Yes (Other)
  Sender: FDA-Public Use
  Company Number: None

PATIENT
  Age: 34 Year
  Sex: Female
  Weight: 68.04 kg

DRUGS (1)
  1. CETIRIZINE [Suspect]
     Indication: ALLERGIC RHINITIS
     Route: 048

REACTIONS (2)
  - Pruritus generalised [None]
  - Withdrawal syndrome [None]
